FAERS Safety Report 8391369-4 (Version None)
Quarter: 2012Q2

REPORT INFORMATION
  Report Type: 
  Country: None (occurrence: None)
  Receive Date: 20120529
  Receipt Date: 20120521
  Transmission Date: 20120825
  Serious: Yes (Hospitalization)
  Sender: FDA-Public Use
  Company Number: US-BAYER-2012-051552

PATIENT
  Age: 30 Year
  Sex: Female

DRUGS (11)
  1. ATENOLOL [Concomitant]
  2. SPIRONOLACTONE [Concomitant]
     Dosage: 50 MG TABLET EVERY DAY
     Route: 048
  3. COLACE [Concomitant]
  4. YAZ [Suspect]
  5. CITALOPRAM [Concomitant]
  6. PHENERGAN [Concomitant]
  7. CIPROFLOXACIN HCL [Concomitant]
     Indication: URINARY TRACT INFECTION
  8. DILAUDID [Concomitant]
  9. DROSPIRENONE AND ETHINYL ESTRADIOL [Suspect]
  10. PHENAZOPYRIDINE HCL TAB [Concomitant]
  11. VICODIN [Concomitant]

REACTIONS (2)
  - VENA CAVA THROMBOSIS [None]
  - PELVIC VENOUS THROMBOSIS [None]
